FAERS Safety Report 7878783-8 (Version None)
Quarter: 2011Q4

REPORT INFORMATION
  Report Type: 
  Country: None (occurrence: None)
  Receive Date: 20111028
  Receipt Date: 20111017
  Transmission Date: 20120403
  Serious: Yes (Life-Threatening, Hospitalization)
  Sender: FDA-Public Use
  Company Number: TCI2011A04955

PATIENT
  Age: 74 Year
  Sex: Male

DRUGS (13)
  1. ACTOS [Suspect]
     Indication: DIABETES MELLITUS
     Dosage: 30 MG (30 MG,1 IN 1 D) PER ORAL
     Route: 048
     Dates: end: 20110912
  2. CALSLOT TABLETS 10 (MANIDIPINE HYDROCHLORIDE) [Concomitant]
  3. JANUVIA [Concomitant]
  4. SPIRIVA [Concomitant]
  5. BUFFERIN [Concomitant]
  6. FAMOTIDINE [Concomitant]
  7. NORVASC [Concomitant]
  8. MAGLAXX (MAGNESIUM OXIDE) [Concomitant]
  9. BEZATOL SR (BEZAFIBRATE) [Concomitant]
  10. OLMESARTAN MEDOXOMIL [Concomitant]
  11. GLUCOBAY [Concomitant]
  12. GLYBURIDE [Concomitant]
  13. URIEF (SILODOSIN) [Concomitant]

REACTIONS (7)
  - FLANK PAIN [None]
  - CONSTIPATION [None]
  - NEPHROLITHIASIS [None]
  - BLADDER TRANSITIONAL CELL CARCINOMA [None]
  - ABDOMINAL PAIN UPPER [None]
  - HAEMATURIA [None]
  - DIVERTICULUM INTESTINAL [None]
